FAERS Safety Report 5475785-6 (Version None)
Quarter: 2007Q4

REPORT INFORMATION
  Report Type: 
  Country: None (occurrence: None)
  Receive Date: 20071003
  Receipt Date: 20070927
  Transmission Date: 20080405
  Serious: Yes (Hospitalization)
  Sender: FDA-Public Use
  Company Number: A0654091A

PATIENT
  Age: 38 Year
  Sex: Female
  Weight: 103.6 kg

DRUGS (4)
  1. TYKERB [Suspect]
     Indication: BREAST CANCER
     Dosage: 1250MG PER DAY
     Route: 048
     Dates: start: 20070529, end: 20070609
  2. XELODA [Suspect]
     Indication: BREAST CANCER
     Dosage: 1GM2 TWICE PER DAY
     Route: 048
     Dates: start: 20070530, end: 20070609
  3. DECADRON [Concomitant]
     Route: 048
  4. DILANTIN [Concomitant]
     Route: 048

REACTIONS (18)
  - ABASIA [None]
  - CHEST DISCOMFORT [None]
  - CYSTITIS [None]
  - DEHYDRATION [None]
  - DIARRHOEA [None]
  - DIARRHOEA HAEMORRHAGIC [None]
  - DYSPHAGIA [None]
  - ERYTHEMA [None]
  - FEELING ABNORMAL [None]
  - MUCOSAL INFLAMMATION [None]
  - OEDEMA PERIPHERAL [None]
  - PAIN IN EXTREMITY [None]
  - PALMAR-PLANTAR ERYTHRODYSAESTHESIA SYNDROME [None]
  - PYREXIA [None]
  - RASH [None]
  - SLEEP DISORDER [None]
  - STOMATITIS [None]
  - WEIGHT DECREASED [None]
